FAERS Safety Report 5443864-5 (Version None)
Quarter: 2007Q3

REPORT INFORMATION
  Report Type: 
  Country: None (occurrence: None)
  Receive Date: 20070905
  Receipt Date: 20070822
  Transmission Date: 20080115
  Serious: No
  Sender: FDA-Public Use
  Company Number: US-BOEHRINGER INGELHEIM PHARMACEUTICALS, INC.-2007-BP-06438BP

PATIENT
  Sex: Female

DRUGS (4)
  1. SPIRIVA [Suspect]
     Indication: CHRONIC OBSTRUCTIVE PULMONARY DISEASE
     Route: 055
     Dates: start: 20050601
  2. CLONAZEPAM [Concomitant]
  3. ALBUTEROL [Concomitant]
  4. NEXIUM [Concomitant]

REACTIONS (2)
  - DYSGEUSIA [None]
  - SINUSITIS [None]
